FAERS Safety Report 10170441 (Version 2)
Quarter: 2014Q2

REPORT INFORMATION
  Report Type: Report from Study
  Country: CN (occurrence: CN)
  Receive Date: 20140513
  Receipt Date: 20140522
  Transmission Date: 20141212
  Serious: Yes (Death)
  Sender: FDA-Public Use
  Company Number: CN-BAXTER-2014BAX024358

PATIENT
  Sex: 0

DRUGS (6)
  1. ENDOXAN 1G [Suspect]
     Indication: PLASMA CELL MYELOMA
     Dosage: CONTINUOUS; DAYS 1-4; FOUR 3 WEEK CYCLES
     Route: 042
  2. ENDOXAN 1G [Suspect]
     Dosage: SIX 8 WEEK CYCLES; CONTINUOUS; ON DAYS 1-4
     Route: 042
  3. BORTEZOMIB [Suspect]
     Indication: PLASMA CELL MYELOMA
     Dosage: FOUR 3 WEEK CYCLES; DOSE ON DAYS 1, 4, 8 AND 11
     Route: 042
  4. BORTEZOMIB [Suspect]
     Dosage: SIX 8 WEEK CYCLES; ON DAYS 1, 8, 15 AND 22
     Route: 042
  5. DEXAMETHASONE [Suspect]
     Indication: PLASMA CELL MYELOMA
     Dosage: ON DAYS 1-4 AND 8-11; FOUR 3 WEEK CYCLES
     Route: 048
  6. DEXAMETHASONE [Suspect]
     Dosage: SIX 8 WEEK CYCLES; ON DAYS 1-4, 8-12, 15-18 AND 22-25
     Route: 048

REACTIONS (1)
  - Death [Fatal]
